FAERS Safety Report 6189052-9 (Version None)
Quarter: 2009Q2

REPORT INFORMATION
  Report Type: 
  Country: None (occurrence: None)
  Receive Date: 20090513
  Receipt Date: 20090504
  Transmission Date: 20091009
  Serious: Yes (Hospitalization)
  Sender: FDA-Public Use
  Company Number: FR-WYE-H09242909

PATIENT
  Sex: Male

DRUGS (5)
  1. CORDARONE [Suspect]
     Indication: ATRIAL FIBRILLATION
     Route: 048
     Dates: start: 20080904, end: 20081015
  2. PARACETAMOL [Concomitant]
     Dosage: DOSE UNKNOWN
     Route: 048
  3. CLAVULANATE POTASSIUM/TICARCILLIN DISODIUM [Concomitant]
     Dosage: DOSE UNKNOWN
     Route: 042
     Dates: start: 20080903, end: 20080911
  4. TRAMADOL HCL [Suspect]
     Dosage: DOSE UNKNOWN
     Route: 048
     Dates: start: 20080903, end: 20081015
  5. CEFTRIAXONE SODIUM [Concomitant]
     Dosage: DOSE UNKNOWN
     Route: 042
     Dates: start: 20080911, end: 20080921

REACTIONS (3)
  - CHOLELITHIASIS [None]
  - CHOLESTASIS [None]
  - CYTOLYTIC HEPATITIS [None]
